FAERS Safety Report 25433817 (Version 1)
Quarter: 2025Q2

REPORT INFORMATION
  Report Type: Spontaneous
  Country: US (occurrence: US)
  Receive Date: 20250613
  Receipt Date: 20250613
  Transmission Date: 20250717
  Serious: Yes (Hospitalization)
  Sender: BAUSCH AND LOMB
  Company Number: US-BAUSCH-BL-2025-007314

PATIENT
  Age: 62 Year
  Sex: Male
  Weight: 98.972 kg

DRUGS (1)
  1. XIFAXAN [Suspect]
     Active Substance: RIFAXIMIN
     Indication: Hepatic cirrhosis
     Dosage: 1 TABLET IN THE MORNING, 1 TABLET IN THE AFTERNOON
     Route: 048
     Dates: start: 202501, end: 202505

REACTIONS (3)
  - Varices oesophageal [Recovered/Resolved]
  - Insurance issue [Unknown]
  - Therapy interrupted [Unknown]

NARRATIVE: CASE EVENT DATE: 20250101
